FAERS Safety Report 15766581 (Version 2)
Quarter: 2018Q4

REPORT INFORMATION
  Report Type: Spontaneous
  Country: HU (occurrence: HU)
  Receive Date: 20181227
  Receipt Date: 20181231
  Transmission Date: 20190205
  Serious: Yes (Hospitalization, Other)
  Sender: FDA-Public Use
  Company Number: HU-PFIZER INC-2018523214

PATIENT
  Age: 65 Year
  Sex: Male

DRUGS (9)
  1. ROSUVASTATIN. [Suspect]
     Active Substance: ROSUVASTATIN
     Dosage: 20 MG, 1X/DAY
  2. PERINDOPRIL [Suspect]
     Active Substance: PERINDOPRIL
     Dosage: 1 DF, UNK (1 TABLET (IN THE MORNING))
  3. SITAGLIPTIN METFORMIN [Suspect]
     Active Substance: METFORMIN HYDROCHLORIDE\SITAGLIPTIN PHOSPHATE
     Dosage: 1 DF, UNK 2 X 1 TABLET (IN THE MORNING)
  4. DOXAZOSIN MESILATE [Suspect]
     Active Substance: DOXAZOSIN MESYLATE
     Dosage: 1 DF, UNK (1 TABLET IN THE EVENING)
  5. NEBIVOLOL. [Suspect]
     Active Substance: NEBIVOLOL
     Dosage: 2.5 MG, UNK (IN THE MORNING)
  6. ROSUVASTATIN. [Suspect]
     Active Substance: ROSUVASTATIN
     Dosage: 10 MG, UNK  (IN THE EVENING)
  7. AMLODIPINE/PERINDOPRIL [Suspect]
     Active Substance: AMLODIPINE\PERINDOPRIL
     Dosage: 1 DF, UNK 1 TABLET IN THE EVENING
  8. ACETYLSALICYLIC ACID [Suspect]
     Active Substance: ASPIRIN
     Dosage: 100 MG, UNK (IN THE EVENING)
  9. EMPAGLIFLOZIN [Suspect]
     Active Substance: EMPAGLIFLOZIN
     Dosage: 1 DF, UNK 1 TABLET, (IN THE MORNING)

REACTIONS (16)
  - Decreased ventricular preload [Unknown]
  - Cardiomegaly [Unknown]
  - Hepatic lesion [Unknown]
  - Dyspnoea exertional [Unknown]
  - Blood triglycerides increased [Unknown]
  - Blood glucose increased [Unknown]
  - Blood pressure increased [Unknown]
  - Chest discomfort [Unknown]
  - Myocardial ischaemia [Unknown]
  - Renal impairment [Unknown]
  - Carotid arteriosclerosis [Unknown]
  - Blood cholesterol increased [Unknown]
  - ECG signs of myocardial ischaemia [Unknown]
  - Blood uric acid increased [Unknown]
  - Anaemia [Unknown]
  - Blood pressure fluctuation [Recovered/Resolved]
